FAERS Safety Report 4372076-1 (Version None)
Quarter: 2004Q2

REPORT INFORMATION
  Report Type: 
  Country: None (occurrence: None)
  Receive Date: 20040601
  Receipt Date: 20040524
  Transmission Date: 20050107
  Serious: Yes (Hospitalization)
  Sender: FDA-Public Use
  Company Number: STA-AE-04-MTX-199

PATIENT
  Age: 69 Year
  Sex: Female

DRUGS (28)
  1. METHOTREXATE [Suspect]
     Indication: CREST SYNDROME
     Dosage: 15 MG 1X PER 1 WK, ORAL
     Route: 048
     Dates: start: 19950501
  2. METHOTREXATE [Suspect]
     Indication: RHEUMATOID ARTHRITIS
     Dosage: 15 MG 1X PER 1 WK, ORAL
     Route: 048
     Dates: start: 19950501
  3. METHOTREXATE [Suspect]
     Indication: SJOGREN'S SYNDROME
     Dosage: 15 MG 1X PER 1 WK, ORAL
     Route: 048
     Dates: start: 19950501
  4. ENBREL [Suspect]
     Indication: CREST SYNDROME
     Dosage: 25 MG 2X PER 1 WK, SC
     Route: 058
     Dates: start: 20021216, end: 20031001
  5. ENBREL [Suspect]
     Indication: RHEUMATOID ARTHRITIS
     Dosage: 25 MG 2X PER 1 WK, SC
     Route: 058
     Dates: start: 20021216, end: 20031001
  6. ENBREL [Suspect]
     Indication: SJOGREN'S SYNDROME
     Dosage: 25 MG 2X PER 1 WK, SC
     Route: 058
     Dates: start: 20021216, end: 20031001
  7. PREDNISONE [Suspect]
     Indication: CREST SYNDROME
     Dosage: 1 MG 2X PER 1 DAY, ORAL
     Route: 048
     Dates: start: 20001001
  8. PREDNISONE [Suspect]
     Indication: RHEUMATOID ARTHRITIS
     Dosage: 1 MG 2X PER 1 DAY, ORAL
     Route: 048
     Dates: start: 20001001
  9. AVALIDE [Concomitant]
  10. FOLIC ACID [Concomitant]
  11. LIPITOR [Concomitant]
  12. NEXIUM [Concomitant]
  13. PLETAL [Concomitant]
  14. AMOXICILLIN [Concomitant]
  15. NEURONTIN [Concomitant]
  16. CARAFATE [Concomitant]
  17. LIDOCAINE [Concomitant]
  18. TRAMADOL HCL [Concomitant]
  19. ASPIRIN [Concomitant]
  20. CITRACAL (CALCIUM CITRATE) [Concomitant]
  21. SLO-MAG (MAGNESIUM CHLORIDE ANHYDROUS) [Concomitant]
  22. CALCIUM WITH VITAMIN D (CALCIUM PHOSPHATE/CALCIUM SODIUM LACTATE/ERGOC [Concomitant]
  23. MACROBID [Concomitant]
  24. ROBAXIN [Concomitant]
  25. SALAGEN [Concomitant]
  26. VALTREX [Concomitant]
  27. SYNTHROID [Concomitant]
  28. MYCELEX [Concomitant]

REACTIONS (8)
  - AUTOIMMUNE DISORDER [None]
  - CONDITION AGGRAVATED [None]
  - HYPONATRAEMIA [None]
  - INFECTION [None]
  - LEUKOCYTOSIS [None]
  - MEDICATION ERROR [None]
  - SCIATICA [None]
  - SELF-MEDICATION [None]
